FAERS Safety Report 21870525 (Version 1)
Quarter: 2023Q1

REPORT INFORMATION
  Report Type: Other
  Country: PL (occurrence: PL)
  Receive Date: 20230117
  Receipt Date: 20230117
  Transmission Date: 20230418
  Serious: Yes (Other)
  Sender: FDA-Public Use
  Company Number: PL-CELLTRION INC.-2023PL000392

PATIENT

DRUGS (1)
  1. RITUXIMAB [Suspect]
     Active Substance: RITUXIMAB
     Indication: Chronic lymphocytic leukaemia
     Dosage: UNK

REACTIONS (4)
  - Haemorrhage urinary tract [Unknown]
  - Petechiae [Unknown]
  - Mouth haemorrhage [Unknown]
  - Drug resistance [Unknown]
